FAERS Safety Report 21101593 (Version 2)
Quarter: 2022Q3

REPORT INFORMATION
  Report Type: Spontaneous
  Country: US (occurrence: US)
  Receive Date: 20220719
  Receipt Date: 20220826
  Transmission Date: 20221027
  Serious: No
  Sender: FDA-Public Use
  Company Number: US-PFIZER INC-202200967020

PATIENT
  Age: 28 Year
  Sex: Female
  Weight: 81.633 kg

DRUGS (3)
  1. PAXLOVID [Suspect]
     Active Substance: NIRMATRELVIR\RITONAVIR
     Indication: COVID-19 treatment
     Dosage: UNK (AS INSTRUCTED)
     Dates: start: 20220712, end: 20220715
  2. LEXAPRO [Concomitant]
     Active Substance: ESCITALOPRAM OXALATE
     Dosage: UNK
     Dates: start: 20181001
  3. VYVANSE [Concomitant]
     Active Substance: LISDEXAMFETAMINE DIMESYLATE
     Dosage: UNK
     Dates: start: 20190601

REACTIONS (5)
  - Hyperhidrosis [Recovered/Resolved]
  - Heavy menstrual bleeding [Recovered/Resolved]
  - Anal incontinence [Recovered/Resolved]
  - Pyrexia [Recovered/Resolved]
  - Incorrect product administration duration [Unknown]

NARRATIVE: CASE EVENT DATE: 20220712
